FAERS Safety Report 16347442 (Version 1)
Quarter: 2019Q3

REPORT INFORMATION
  Report Type: Spontaneous
  Country: US (occurrence: US)
  Receive Date: 20190522
  Receipt Date: 20190522
  Transmission Date: 20191004
  Serious: Yes (Hospitalization)
  Sender: FDA-Public Use
  Company Number: None

PATIENT
  Age: 72 Year
  Sex: Female
  Weight: 75 kg

DRUGS (1)
  1. DROXIDOPA [Suspect]
     Active Substance: DROXIDOPA
     Indication: ORTHOSTATIC HYPOTENSION
     Route: 048
     Dates: start: 20190501, end: 20190516

REACTIONS (5)
  - Hypertension [None]
  - Hallucination [None]
  - Tremor [None]
  - Dysphemia [None]
  - Abnormal behaviour [None]

NARRATIVE: CASE EVENT DATE: 20190517
